FAERS Safety Report 16817382 (Version 1)
Quarter: 2019Q4

REPORT INFORMATION
  Report Type: Spontaneous
  Country: BR (occurrence: BR)
  Receive Date: 20190917
  Receipt Date: 20190917
  Transmission Date: 20200122
  Serious: Yes (Other)
  Sender: FDA-Public Use
  Company Number: None

PATIENT
  Age: 58 Year
  Sex: Male
  Weight: 80 kg

DRUGS (2)
  1. AXERON [Suspect]
     Active Substance: TESTOSTERONE
     Indication: HORMONE REPLACEMENT THERAPY
     Dosage: ?          QUANTITY:2 PATCH(ES);?
     Route: 061
  2. ANDROGEL [Suspect]
     Active Substance: TESTOSTERONE

REACTIONS (2)
  - Product use complaint [None]
  - Blood oestrogen increased [None]
